FAERS Safety Report 16431244 (Version 2)
Quarter: 2019Q4

REPORT INFORMATION
  Report Type: Report from Study
  Country: None (occurrence: NL)
  Receive Date: 20190614
  Receipt Date: 20191121
  Transmission Date: 20200122
  Serious: Yes (Other)
  Sender: FDA-Public Use
  Company Number: NL-ABBVIE-17K-114-2173473-00

PATIENT
  Sex: Male
  Weight: 50 kg

DRUGS (2)
  1. DUODOPA [Suspect]
     Active Substance: CARBIDOPA\LEVODOPA
     Dosage: CD:DECREASED
     Route: 050
  2. DUODOPA [Suspect]
     Active Substance: CARBIDOPA\LEVODOPA
     Indication: PARKINSON^S DISEASE
     Dosage: MD 14?CD 5.9 ?ED 2
     Route: 050
     Dates: start: 20160307

REACTIONS (28)
  - Weight decreased [Recovered/Resolved]
  - On and off phenomenon [Recovered/Resolved]
  - Bradykinesia [Unknown]
  - Visual impairment [Not Recovered/Not Resolved]
  - Dyskinesia [Recovered/Resolved]
  - Hypokinesia [Not Recovered/Not Resolved]
  - Stoma site reaction [Not Recovered/Not Resolved]
  - Loss of personal independence in daily activities [Unknown]
  - Balance disorder [Not Recovered/Not Resolved]
  - Fall [Recovered/Resolved]
  - Weight increased [Recovered/Resolved]
  - Initial insomnia [Not Recovered/Not Resolved]
  - Musculoskeletal stiffness [Not Recovered/Not Resolved]
  - Stoma site discharge [Not Recovered/Not Resolved]
  - Fibroma [Not Recovered/Not Resolved]
  - Freezing phenomenon [Unknown]
  - Muscle rigidity [Not Recovered/Not Resolved]
  - Tension [Not Recovered/Not Resolved]
  - Fatigue [Recovered/Resolved]
  - Stoma site erythema [Not Recovered/Not Resolved]
  - Fall [Recovered/Resolved]
  - Hunger [Not Recovered/Not Resolved]
  - Weight decreased [Recovered/Resolved]
  - Therapeutic product effect incomplete [Unknown]
  - Hyperkinesia [Not Recovered/Not Resolved]
  - Memory impairment [Not Recovered/Not Resolved]
  - On and off phenomenon [Not Recovered/Not Resolved]
  - Stoma site pain [Unknown]

NARRATIVE: CASE EVENT DATE: 2016
